FAERS Safety Report 18136852 (Version 5)
Quarter: 2021Q2

REPORT INFORMATION
  Report Type: Spontaneous
  Country: CA (occurrence: CA)
  Receive Date: 20200812
  Receipt Date: 20210405
  Transmission Date: 20210717
  Serious: Yes (Hospitalization, Other)
  Sender: FDA-Public Use
  Company Number: CA-AUROBINDO-AUR-APL-2020-038329

PATIENT
  Age: 44 Year
  Sex: Male

DRUGS (24)
  1. CBD OIL [Interacting]
     Active Substance: CANNABIDIOL\HERBALS
     Indication: PAIN
     Dosage: UNK (VAPORIZED OIL)
     Route: 065
  2. CBD OIL [Interacting]
     Active Substance: CANNABIDIOL\HERBALS
     Indication: NEURALGIA
  3. DRONABINOL. [Interacting]
     Active Substance: DRONABINOL
     Dosage: UNK (VAPORIZED THC USE (TWO?THREE TIMES HIS USUAL DOSE))
     Route: 065
  4. TEMAZEPAM. [Interacting]
     Active Substance: TEMAZEPAM
     Indication: PAIN
     Dosage: UNK
     Route: 065
  5. ONDANSETRON [Concomitant]
     Active Substance: ONDANSETRON
     Indication: PROPHYLAXIS
     Dosage: UNK UNK, DAILY
     Route: 042
  6. TEMAZEPAM. [Interacting]
     Active Substance: TEMAZEPAM
     Indication: NEURALGIA
  7. DULOXETINE. [Suspect]
     Active Substance: DULOXETINE
     Indication: PAIN
     Dosage: UNK
     Route: 065
  8. AMITRIPTYLINE [Interacting]
     Active Substance: AMITRIPTYLINE
     Indication: NEURALGIA
  9. DRONABINOL. [Interacting]
     Active Substance: DRONABINOL
     Indication: ANALGESIC THERAPY
     Dosage: 0.3 G/WEEK? 1
     Route: 065
  10. KETAMINE [Interacting]
     Active Substance: KETAMINE
     Indication: NEURALGIA
     Dosage: 1.6 MILLIGRAM/KILOGRAM, EVERY HOUR
     Route: 042
  11. MAGNESIUM SULFATE. [Concomitant]
     Active Substance: MAGNESIUM SULFATE
     Indication: ANALGESIC THERAPY
     Dosage: 50 MG?KG? 1 BOLUS
     Route: 040
  12. AMITRIPTYLINE [Interacting]
     Active Substance: AMITRIPTYLINE
     Indication: PAIN
     Dosage: UNK
     Route: 065
  13. LIDOCAINE. [Concomitant]
     Active Substance: LIDOCAINE
     Indication: ANALGESIC THERAPY
     Dosage: 5 MG?KG?1 (BOLUS)
     Route: 061
  14. LIDOCAINE. [Concomitant]
     Active Substance: LIDOCAINE
     Indication: NEURALGIA
  15. MAGNESIUM SULFATE. [Concomitant]
     Active Substance: MAGNESIUM SULFATE
     Indication: NEURALGIA
     Dosage: 15 MG?KG? 1?HR? 1
     Route: 065
  16. ZOPICLONE [Interacting]
     Active Substance: ZOPICLONE
     Indication: PAIN
     Dosage: UNK
     Route: 065
  17. MAGNESIUM SULFATE. [Concomitant]
     Active Substance: MAGNESIUM SULFATE
     Indication: ANALGESIC THERAPY
     Dosage: 50 MILLIGRAM/KILOGRAM
     Route: 065
  18. KETAMINE [Interacting]
     Active Substance: KETAMINE
     Indication: NEURALGIA
     Dosage: 0.5 MG/KG?1 HR?1 (BOLUS) (HIGH DOSE, 30 HR OVER FIVE DAYS; 8:00 AM TO 2:00 PM EACH DAY)
     Route: 040
  19. KETAMINE [Interacting]
     Active Substance: KETAMINE
     Dosage: 1.6 MILLIGRAM/KILOGRAM, EVERY HOUR (HIGH DOSE, 30 HR OVER FIVE DAYS; 8:00 AM TO 2:00 PM EACH DAY)
     Route: 042
  20. ZOPICLONE [Interacting]
     Active Substance: ZOPICLONE
     Indication: NEURALGIA
  21. KETAMINE [Interacting]
     Active Substance: KETAMINE
     Indication: PAIN
     Dosage: 0.5 MG/KG? 1 (BOLUS) (HIGH DOSE, 30 HR OVER FIVE DAYS; 8:00 AM TO 2:00 PM EACH DAY)
     Route: 042
  22. MIDAZOLAM. [Interacting]
     Active Substance: MIDAZOLAM
     Indication: PROPHYLAXIS
     Dosage: UNK UNK, DAILY
     Route: 042
  23. DULOXETINE. [Interacting]
     Active Substance: DULOXETINE
     Indication: NEURALGIA
  24. DEXAMETHASONE. [Concomitant]
     Active Substance: DEXAMETHASONE
     Indication: PROPHYLAXIS
     Dosage: UNK UNK, DAILY
     Route: 042

REACTIONS (10)
  - Confusional state [Recovered/Resolved]
  - Drug interaction [Recovered/Resolved]
  - Psychotic disorder [Recovered/Resolved]
  - Agitation [Recovered/Resolved]
  - Hypersexuality [Recovered/Resolved]
  - Restlessness [Recovered/Resolved]
  - Aggression [Recovered/Resolved]
  - Drug level increased [Recovered/Resolved]
  - Behaviour disorder [Recovered/Resolved]
  - Disinhibition [Recovered/Resolved]
